FAERS Safety Report 20705928 (Version 3)
Quarter: 2022Q2

REPORT INFORMATION
  Report Type: Spontaneous
  Country: CA (occurrence: CA)
  Receive Date: 20220413
  Receipt Date: 20220504
  Transmission Date: 20220721
  Serious: Yes (Other)
  Sender: FDA-Public Use
  Company Number: CA-JNJFOC-20220417166

PATIENT

DRUGS (1)
  1. REMICADE [Suspect]
     Active Substance: INFLIXIMAB
     Indication: Product used for unknown indication
     Dosage: 16 TO 17 YEARS AGO
     Route: 042
     Dates: end: 2021

REACTIONS (5)
  - Immobile [Unknown]
  - Pain [Unknown]
  - Memory impairment [Unknown]
  - Infusion related reaction [Unknown]
  - Drug ineffective [Unknown]
